FAERS Safety Report 25871360 (Version 2)
Quarter: 2025Q4

REPORT INFORMATION
  Report Type: Spontaneous
  Country: US (occurrence: US)
  Receive Date: 20251001
  Receipt Date: 20251121
  Transmission Date: 20260117
  Serious: Yes (Other)
  Sender: PFIZER
  Company Number: US-PFIZER INC-PV202300176625

PATIENT
  Age: 62 Year
  Sex: Male

DRUGS (1)
  1. RUXIENCE [Suspect]
     Active Substance: RITUXIMAB-PVVR
     Dosage: 900MG AND 50ML SDV

REACTIONS (2)
  - Autoimmune haemolytic anaemia [Unknown]
  - Product prescribing error [Unknown]
